FAERS Safety Report 5117163-5 (Version None)
Quarter: 2006Q3

REPORT INFORMATION
  Report Type: 
  Country: None (occurrence: None)
  Receive Date: 20060927
  Receipt Date: 20060927
  Transmission Date: 20061208
  Serious: No
  Sender: FDA-Public Use
  Company Number: None

PATIENT
  Age: 23 Year
  Sex: Male
  Weight: 66.4 kg

DRUGS (1)
  1. PHENERGAN [Suspect]
     Indication: VOMITING
     Dosage: 12.5 MG ONCE IVP
     Route: 042
     Dates: start: 20051209

REACTIONS (3)
  - CELLULITIS [None]
  - THROMBOPHLEBITIS [None]
  - VOMITING [None]
